FAERS Safety Report 9510825 (Version 1)
Quarter: 2013Q3

REPORT INFORMATION
  Report Type: Spontaneous
  Country: US (occurrence: US)
  Receive Date: 20130910
  Receipt Date: 20130910
  Transmission Date: 20140515
  Serious: No
  Sender: FDA-Public Use
  Company Number: US-BIOGENIDEC-2013BI083771

PATIENT
  Sex: Female

DRUGS (4)
  1. AVONEX [Suspect]
     Indication: MULTIPLE SCLEROSIS
     Route: 030
     Dates: start: 20130710
  2. HYDROCODONE-ACETAMINOPHEN [Concomitant]
  3. AMITRIPTYLINE HCL [Concomitant]
  4. AXYBUNTYN  CHLORIDE ER [Concomitant]

REACTIONS (3)
  - Nausea [Unknown]
  - Mood altered [Unknown]
  - Insomnia [Unknown]
